FAERS Safety Report 8859236 (Version 3)
Quarter: 2013Q2

REPORT INFORMATION
  Report Type: Spontaneous
  Country: US (occurrence: US)
  Receive Date: 20121024
  Receipt Date: 20130509
  Transmission Date: 20140414
  Serious: No
  Sender: FDA-Public Use
  Company Number: US-PFIZER INC-2012265451

PATIENT
  Age: 47 Year
  Sex: Female
  Weight: 57.14 kg

DRUGS (1)
  1. LYRICA [Suspect]
     Indication: FIBROMYALGIA
     Dosage: 150 MG, 1X/DAY
     Route: 048
     Dates: end: 201207

REACTIONS (2)
  - Withdrawal syndrome [Unknown]
  - Pain [Unknown]
